FAERS Safety Report 21917497 (Version 1)
Quarter: 2023Q1

REPORT INFORMATION
  Report Type: Other
  Country: DE (occurrence: DE)
  Receive Date: 20230126
  Receipt Date: 20230126
  Transmission Date: 20230417
  Serious: Yes (Other)
  Sender: FDA-Public Use
  Company Number: DE-MACLEODS PHARMACEUTICALS US LTD-MAC2023039422

PATIENT

DRUGS (3)
  1. VENLAFAXINE [Suspect]
     Active Substance: VENLAFAXINE HYDROCHLORIDE
     Indication: Product used for unknown indication
     Dosage: 75 MILLIGRAM, QD, 0. - 40.1. GESTATIONAL WEEK, 1 {TRIMESTER}
     Route: 064
     Dates: start: 20210414, end: 20220120
  2. ABILIFY [Suspect]
     Active Substance: ARIPIPRAZOLE
     Indication: Product used for unknown indication
     Dosage: 5 MILLIGRAM, QD, 5 [MG/D ], 0. - 40.1. GESTATIONAL WEEK,1 {TRIMESTER}
     Route: 064
     Dates: start: 20210414, end: 20220120
  3. LEVOTHYROXINE SODIUM [Concomitant]
     Active Substance: LEVOTHYROXINE SODIUM
     Indication: Product used for unknown indication
     Dosage: 100 MICROGRAM, QD, 100 [U/D ], 0. - 40.1. GESTATIONAL WEEK, 1 {TRIMESTER}
     Route: 064
     Dates: start: 20210414, end: 20220120

REACTIONS (2)
  - Small for dates baby [Not Recovered/Not Resolved]
  - Foetal exposure during pregnancy [Unknown]
